FAERS Safety Report 4350146-1 (Version None)
Quarter: 2004Q2

REPORT INFORMATION
  Report Type: 
  Country: None (occurrence: None)
  Receive Date: 20040429
  Receipt Date: 20040419
  Transmission Date: 20050107
  Serious: Yes (Other)
  Sender: FDA-Public Use
  Company Number: PHBS2004BR05450

PATIENT
  Age: 67 Year
  Sex: Female

DRUGS (1)
  1. CODATEN [Suspect]
     Dosage: .5 DF, Q8H
     Route: 048
     Dates: start: 20040416, end: 20040417

REACTIONS (4)
  - CHILLS [None]
  - DIZZINESS [None]
  - MALAISE [None]
  - SYNCOPE [None]
